FAERS Safety Report 23761781 (Version 2)
Quarter: 2024Q2

REPORT INFORMATION
  Report Type: Spontaneous
  Country: RO (occurrence: RO)
  Receive Date: 20240419
  Receipt Date: 20240513
  Transmission Date: 20240716
  Serious: Yes (Death)
  Sender: FDA-Public Use
  Company Number: RO-AMGEN-ROUSP2024076072

PATIENT
  Age: 65 Year
  Sex: Male

DRUGS (1)
  1. REPATHA [Suspect]
     Active Substance: EVOLOCUMAB
     Indication: Product used for unknown indication
     Dosage: 140 MILLIGRAM, Q2WK
     Route: 065
     Dates: start: 202401

REACTIONS (3)
  - Cardiac arrest [Fatal]
  - Myocardial infarction [Fatal]
  - Arterial stenosis [Fatal]

NARRATIVE: CASE EVENT DATE: 20240101
